FAERS Safety Report 22530174 (Version 2)
Quarter: 2023Q2

REPORT INFORMATION
  Report Type: Report from Study
  Country: UY (occurrence: UY)
  Receive Date: 20230607
  Receipt Date: 20230616
  Transmission Date: 20230721
  Serious: Yes (Death, Hospitalization)
  Sender: FDA-Public Use
  Company Number: UY-ABBVIE-4711432

PATIENT
  Sex: Female

DRUGS (1)
  1. RINVOQ [Suspect]
     Active Substance: UPADACITINIB
     Indication: Rheumatoid arthritis
     Dosage: FORM STRENGTH 15 MILLIGRAM
     Route: 048
     Dates: start: 20230127

REACTIONS (13)
  - Multiple organ dysfunction syndrome [Fatal]
  - Gait inability [Recovering/Resolving]
  - Muscle disorder [Unknown]
  - Bacteraemia [Unknown]
  - General physical health deterioration [Unknown]
  - Mobility decreased [Recovering/Resolving]
  - Arthralgia [Recovering/Resolving]
  - Arthropathy [Unknown]
  - Pneumonia bacterial [Unknown]
  - Gait disturbance [Unknown]
  - Urinary tract infection [Unknown]
  - Unevaluable event [Unknown]
  - Arthritis bacterial [Fatal]

NARRATIVE: CASE EVENT DATE: 20230101
